FAERS Safety Report 13738490 (Version 2)
Quarter: 2018Q2

REPORT INFORMATION
  Report Type: Spontaneous
  Country: US (occurrence: US)
  Receive Date: 20170710
  Receipt Date: 20180627
  Transmission Date: 20180711
  Serious: Yes (Other)
  Sender: FDA-Public Use
  Company Number: US-SAOL THERAPEUTICS-2016SAO01326

PATIENT
  Age: 52 Year
  Sex: Female
  Weight: 63.5 kg

DRUGS (7)
  1. BACLOFEN. [Suspect]
     Active Substance: BACLOFEN
     Indication: PAIN
     Dosage: 39.867 ?G, \DAY
     Route: 037
  2. BACLOFEN. [Suspect]
     Active Substance: BACLOFEN
     Indication: POST LAMINECTOMY SYNDROME
     Dosage: 0.473 ?G, \DAY
     Route: 037
  3. FENTANYL. [Suspect]
     Active Substance: FENTANYL
     Dosage: 0.592 ?G, \DAY
     Route: 037
  4. BUPIVICAINE [Suspect]
     Active Substance: BUPIVACAINE
     Dosage: 12 MG, \DAY
     Route: 037
  5. FENTANYL. [Suspect]
     Active Substance: FENTANYL
     Dosage: 49.967 ?G, \DAY
     Route: 037
  6. BUPIVICAINE [Suspect]
     Active Substance: BUPIVACAINE
     Dosage: 6.379 MG, \DAY
     Route: 037
  7. UNSPECIFIED ORAL MEDICATIONS [Concomitant]
     Route: 048

REACTIONS (5)
  - Pain [Recovered/Resolved]
  - Drug ineffective for unapproved indication [Recovered/Resolved]
  - Overdose [Unknown]
  - Pruritus [Unknown]
  - Device failure [Unknown]

NARRATIVE: CASE EVENT DATE: 20161226
